FAERS Safety Report 7626507-1 (Version None)
Quarter: 2011Q3

REPORT INFORMATION
  Report Type: 
  Country: None (occurrence: None)
  Receive Date: 20110721
  Receipt Date: 20110715
  Transmission Date: 20111222
  Serious: Yes (Other)
  Sender: FDA-Public Use
  Company Number: US-ROCHE-786612

PATIENT
  Sex: Female
  Weight: 88 kg

DRUGS (8)
  1. ACTEMRA [Suspect]
     Route: 042
     Dates: start: 20110622
  2. PREDNISONE [Concomitant]
     Dosage: START DATE: BEFORE 2009
     Route: 048
  3. LEXAPRO [Concomitant]
     Indication: DEPRESSION
     Route: 048
     Dates: start: 20040101
  4. PREDNISONE [Concomitant]
     Route: 048
     Dates: start: 20110623
  5. OXYCONTIN [Concomitant]
     Indication: PAIN
     Route: 048
  6. ACTEMRA [Suspect]
     Dosage: DOSE 400 MG, RECEIVED ONCE
     Route: 042
     Dates: start: 20110628
  7. ELAVIL [Concomitant]
     Indication: SOMNOLENCE
     Route: 048
  8. SKELAXIN [Concomitant]
     Route: 048
     Dates: start: 20090101

REACTIONS (4)
  - DIZZINESS [None]
  - MOVEMENT DISORDER [None]
  - ARTHRITIS [None]
  - ARTHRALGIA [None]
